FAERS Safety Report 6443179-2 (Version None)
Quarter: 2009Q4

REPORT INFORMATION
  Report Type: 
  Country: None (occurrence: None)
  Receive Date: 20091117
  Receipt Date: 20091110
  Transmission Date: 20100525
  Serious: Yes (Life-Threatening)
  Sender: FDA-Public Use
  Company Number: B0604725A

PATIENT
  Age: 62 Year
  Sex: Male

DRUGS (1)
  1. AUGMENTIN '125' [Suspect]
     Indication: INFECTION PROPHYLAXIS
     Route: 042
     Dates: start: 20090622, end: 20090622

REACTIONS (1)
  - ANAPHYLACTIC SHOCK [None]
